FAERS Safety Report 6705228-3 (Version None)
Quarter: 2010Q2

REPORT INFORMATION
  Report Type: 
  Country: None (occurrence: None)
  Receive Date: 20100430
  Receipt Date: 20090302
  Transmission Date: 20101027
  Serious: No
  Sender: FDA-Public Use
  Company Number: US-ASTRAZENECA-2009UW05620

PATIENT
  Sex: Male

DRUGS (1)
  1. NEXIUM IV [Suspect]
     Route: 042

REACTIONS (1)
  - HAEMOPTYSIS [None]
